FAERS Safety Report 12406426 (Version 9)
Quarter: 2017Q4

REPORT INFORMATION
  Report Type: Report from Study
  Country: HU (occurrence: HU)
  Receive Date: 20160526
  Receipt Date: 20171012
  Transmission Date: 20180320
  Serious: Yes (Other)
  Sender: FDA-Public Use
  Company Number: HU-ROCHE-1756571

PATIENT
  Age: 47 Year
  Sex: Female

DRUGS (4)
  1. ZELBORAF [Suspect]
     Active Substance: VEMURAFENIB
     Dosage: THERAPY SUSPENDED DUE TO AE
     Route: 048
     Dates: start: 20160510, end: 20160517
  2. ZELBORAF [Suspect]
     Active Substance: VEMURAFENIB
     Route: 048
     Dates: start: 20160530, end: 20171005
  3. COTELLIC [Suspect]
     Active Substance: COBIMETINIB
     Indication: MALIGNANT MELANOMA
     Route: 048
     Dates: start: 20160425, end: 20171005
  4. ZELBORAF [Suspect]
     Active Substance: VEMURAFENIB
     Indication: METASTATIC MALIGNANT MELANOMA
     Route: 048
     Dates: start: 20160425

REACTIONS (20)
  - Rash pustular [Recovered/Resolved]
  - Pain of skin [Unknown]
  - Pneumonia [Unknown]
  - Rash generalised [Recovered/Resolved]
  - Productive cough [Unknown]
  - Diarrhoea [Not Recovered/Not Resolved]
  - Upper respiratory tract infection [Unknown]
  - Sunburn [Recovered/Resolved]
  - Loss of consciousness [Recovered/Resolved]
  - Eye haemorrhage [Unknown]
  - Migraine [Unknown]
  - Eczema [Unknown]
  - Toxic skin eruption [Recovered/Resolved]
  - Skin lesion [Unknown]
  - Alopecia [Unknown]
  - Vision blurred [Recovered/Resolved]
  - Sunburn [Not Recovered/Not Resolved]
  - Diarrhoea [Recovered/Resolved]
  - Muscle spasms [Recovered/Resolved]
  - Rash pustular [Not Recovered/Not Resolved]

NARRATIVE: CASE EVENT DATE: 201605
